FAERS Safety Report 8108179-5 (Version None)
Quarter: 2012Q1

REPORT INFORMATION
  Report Type: 
  Country: None (occurrence: None)
  Receive Date: 20120202
  Receipt Date: 20120126
  Transmission Date: 20120608
  Serious: Yes (Hospitalization)
  Sender: FDA-Public Use
  Company Number: JP-VERTEX PHARMACEUTICALS INC.-AE-2012-001596

PATIENT
  Age: 50 Year
  Sex: Female

DRUGS (2)
  1. REBETOL [Concomitant]
     Route: 048
     Dates: start: 20120116
  2. TELAVIC (TELAPREVIR) [Suspect]
     Route: 048
     Dates: start: 20120116

REACTIONS (2)
  - ASPARTATE AMINOTRANSFERASE INCREASED [None]
  - ALANINE AMINOTRANSFERASE INCREASED [None]
